FAERS Safety Report 19031476 (Version 3)
Quarter: 2021Q2

REPORT INFORMATION
  Report Type: Report from Study
  Country: US (occurrence: US)
  Receive Date: 20210319
  Receipt Date: 20210430
  Transmission Date: 20210717
  Serious: Yes (Hospitalization)
  Sender: FDA-Public Use
  Company Number: US-EMD SERONO-9225743

PATIENT
  Sex: Female

DRUGS (1)
  1. REBIF [Suspect]
     Active Substance: INTERFERON BETA-1A
     Indication: PRODUCT USED FOR UNKNOWN INDICATION
     Dosage: PREFILLED SYRINGE
     Route: 058
     Dates: start: 20201019

REACTIONS (4)
  - Feeling abnormal [Unknown]
  - Infection [Unknown]
  - Limb discomfort [Not Recovered/Not Resolved]
  - Upper respiratory tract infection [Unknown]
